FAERS Safety Report 22280672 (Version 2)
Quarter: 2023Q4

REPORT INFORMATION
  Report Type: Report from Study
  Country: US (occurrence: US)
  Receive Date: 20230503
  Receipt Date: 20231025
  Transmission Date: 20240109
  Serious: No
  Sender: FDA-Public Use
  Company Number: US-IDORSIA-003370-2023-US

PATIENT
  Sex: Female

DRUGS (1)
  1. QUVIVIQ [Suspect]
     Active Substance: DARIDOREXANT
     Indication: Insomnia
     Dosage: 50 MG, QD
     Route: 048

REACTIONS (6)
  - Fall [Recovering/Resolving]
  - Head injury [Recovering/Resolving]
  - Mental impairment [Recovering/Resolving]
  - Disorientation [Recovering/Resolving]
  - Somnolence [Unknown]
  - Fatigue [Recovering/Resolving]
